FAERS Safety Report 24647504 (Version 2)
Quarter: 2024Q4

REPORT INFORMATION
  Report Type: Spontaneous
  Country: US (occurrence: US)
  Receive Date: 20241121
  Receipt Date: 20241206
  Transmission Date: 20250115
  Serious: Yes (Hospitalization)
  Sender: DOMPE FARMACEUTICI
  Company Number: US-FARMAPROD-202411-3884

PATIENT
  Sex: Male

DRUGS (13)
  1. OXERVATE [Suspect]
     Active Substance: CENEGERMIN-BKBJ
     Indication: Neurotrophic keratopathy
     Route: 047
     Dates: start: 20241031
  2. OXERVATE [Suspect]
     Active Substance: CENEGERMIN-BKBJ
  3. MAXITROL [Concomitant]
     Active Substance: DEXAMETHASONE\NEOMYCIN SULFATE\POLYMYXIN B SULFATE
     Dosage: 3.5-10K-0.1
  4. DULOXETINE HYDROCHLORIDE [Concomitant]
     Active Substance: DULOXETINE HYDROCHLORIDE
  5. MELOXICAM [Concomitant]
     Active Substance: MELOXICAM
  6. PREGABALIN [Concomitant]
     Active Substance: PREGABALIN
  7. PROTONIX [Concomitant]
     Active Substance: PANTOPRAZOLE SODIUM
  8. EZETIMIBE [Concomitant]
     Active Substance: EZETIMIBE
  9. ROSUVASTATIN CALCIUM [Concomitant]
     Active Substance: ROSUVASTATIN CALCIUM
  10. CLOPIDOGREL [Concomitant]
     Active Substance: CLOPIDOGREL BISULFATE
  11. CARVEDILOL [Concomitant]
     Active Substance: CARVEDILOL
  12. HUMULIN R [Concomitant]
     Active Substance: INSULIN HUMAN
     Dosage: IU-500 KWIKPEN
  13. MORPHINE SULFATE-0.9% NACL [Concomitant]

REACTIONS (1)
  - Hospitalisation [Unknown]
